FAERS Safety Report 5135834-1 (Version None)
Quarter: 2006Q4

REPORT INFORMATION
  Report Type: 
  Country: None (occurrence: None)
  Receive Date: 20061026
  Receipt Date: 20061012
  Transmission Date: 20070319
  Serious: No
  Sender: FDA-Public Use
  Company Number: US-ELI_LILLY_AND_COMPANY-US200610002371

PATIENT
  Age: 51 Year
  Sex: Female

DRUGS (3)
  1. CYMBALTA [Suspect]
     Indication: NEURALGIA
     Dosage: UNK MG, UNK
     Route: 048
     Dates: start: 20061008
  2. XANAX                                   /USA/ [Concomitant]
     Indication: SLEEP DISORDER
     Dosage: .5 MG, UNK
  3. SYNTHROID [Concomitant]
     Dosage: UNK D/F, UNK

REACTIONS (13)
  - AGITATION [None]
  - BLOOD PRESSURE INCREASED [None]
  - CHILLS [None]
  - CHROMATURIA [None]
  - DRUG INEFFECTIVE [None]
  - DRY MOUTH [None]
  - FACE OEDEMA [None]
  - HEART RATE INCREASED [None]
  - INSOMNIA [None]
  - MANIA [None]
  - PAIN [None]
  - TREMOR [None]
  - VISION BLURRED [None]
